FAERS Safety Report 13799084 (Version 2)
Quarter: 2017Q4

REPORT INFORMATION
  Report Type: Spontaneous
  Country: US (occurrence: US)
  Receive Date: 20170727
  Receipt Date: 20171009
  Transmission Date: 20180320
  Serious: No
  Sender: FDA-Public Use
  Company Number: US-JNJFOC-20170509756

PATIENT
  Age: 23 Year
  Sex: Female
  Weight: 65.77 kg

DRUGS (1)
  1. VISINE A [Suspect]
     Active Substance: NAPHAZOLINE HYDROCHLORIDE\PHENIRAMINE MALEATE
     Indication: EYE ALLERGY
     Dosage: 2 DROPS PER EYE, 2 TIMES A DAY.
     Route: 047
     Dates: start: 20170507, end: 20170509

REACTIONS (5)
  - Mydriasis [Recovered/Resolved]
  - Eye injury [Recovered/Resolved]
  - Eye irritation [Recovered/Resolved]
  - Wrong technique in product usage process [Recovered/Resolved]
  - Photophobia [Recovered/Resolved]

NARRATIVE: CASE EVENT DATE: 20170507
